FAERS Safety Report 14844366 (Version 1)
Quarter: 2018Q2

REPORT INFORMATION
  Report Type: Report from Study
  Country: None (occurrence: CA)
  Receive Date: 20180503
  Receipt Date: 20180503
  Transmission Date: 20180711
  Serious: Yes (Hospitalization)
  Sender: FDA-Public Use
  Company Number: CA-ABBVIE-18K-028-2312495-00

PATIENT
  Age: 37 Year
  Sex: Female
  Weight: 90.8 kg

DRUGS (1)
  1. HUMIRA [Suspect]
     Active Substance: ADALIMUMAB
     Indication: CROHN^S DISEASE
     Route: 058
     Dates: start: 20170619

REACTIONS (3)
  - Constipation [Recovering/Resolving]
  - Anal stenosis [Recovering/Resolving]
  - Obstruction [Recovering/Resolving]

NARRATIVE: CASE EVENT DATE: 20180401
